FAERS Safety Report 10082477 (Version 1)
Quarter: 2014Q2

REPORT INFORMATION
  Report Type: Spontaneous
  Country: US (occurrence: None)
  Receive Date: 20140415
  Receipt Date: 20140415
  Transmission Date: 20141212
  Serious: Yes (Other)
  Sender: FDA-Public Use
  Company Number: None

PATIENT
  Age: 49 Year
  Sex: 0

DRUGS (1)
  1. ENBREL [Suspect]

REACTIONS (2)
  - Hypoaesthesia oral [None]
  - Paraesthesia oral [None]
